FAERS Safety Report 5114125-9 (Version None)
Quarter: 2006Q3

REPORT INFORMATION
  Report Type: 
  Country: None (occurrence: None)
  Receive Date: 20060925
  Receipt Date: 20060919
  Transmission Date: 20061208
  Serious: Yes (Other)
  Sender: FDA-Public Use
  Company Number: 2006UW18314

PATIENT
  Age: 59 Year
  Sex: Female

DRUGS (3)
  1. SEROQUEL [Suspect]
     Route: 048
  2. SEROQUEL [Suspect]
     Route: 048
     Dates: start: 20060901, end: 20060901
  3. SEROQUEL [Suspect]
     Route: 048
     Dates: start: 20060901

REACTIONS (1)
  - CARDIAC DISORDER [None]
